FAERS Safety Report 7249963-X (Version None)
Quarter: 2011Q1

REPORT INFORMATION
  Report Type: 
  Country: None (occurrence: None)
  Receive Date: 20110128
  Receipt Date: 20101013
  Transmission Date: 20110831
  Serious: No
  Sender: FDA-Public Use
  Company Number: A0891870A

PATIENT
  Age: 51 Year
  Sex: Female

DRUGS (3)
  1. ESTROGENIC SUBSTANCE [Concomitant]
  2. PROGESTERONE [Concomitant]
  3. WELLBUTRIN XL [Suspect]
     Dosage: 300MG PER DAY
     Route: 048
     Dates: start: 20100101

REACTIONS (1)
  - ALOPECIA [None]
